FAERS Safety Report 20875842 (Version 1)
Quarter: 2022Q2

REPORT INFORMATION
  Report Type: Spontaneous
  Country: US (occurrence: US)
  Receive Date: 20220526
  Receipt Date: 20220526
  Transmission Date: 20220721
  Serious: No
  Sender: FDA-Public Use
  Company Number: US-JNJFOC-20220540537

PATIENT

DRUGS (1)
  1. ZYRTEC [Suspect]
     Active Substance: CETIRIZINE HYDROCHLORIDE
     Indication: Multiple allergies
     Dosage: TOOK ONE YESTERDAY
     Route: 065
     Dates: start: 20220518

REACTIONS (2)
  - Hypersensitivity [Unknown]
  - Drug ineffective [Unknown]

NARRATIVE: CASE EVENT DATE: 20220501
